FAERS Safety Report 5312223-8 (Version None)
Quarter: 2007Q2

REPORT INFORMATION
  Report Type: 
  Country: None (occurrence: None)
  Receive Date: 20070430
  Receipt Date: 20070129
  Transmission Date: 20071010
  Serious: No
  Sender: FDA-Public Use
  Company Number: 2006UW19131

PATIENT
  Age: 74 Year
  Sex: Female

DRUGS (1)
  1. NEXIUM [Suspect]
     Indication: DYSPHONIA
     Route: 048
     Dates: start: 20060101

REACTIONS (4)
  - OESOPHAGEAL ULCER [None]
  - RECTAL HAEMORRHAGE [None]
  - RETCHING [None]
  - SALIVARY HYPERSECRETION [None]
